FAERS Safety Report 5895088-5 (Version None)
Quarter: 2008Q3

REPORT INFORMATION
  Report Type: 
  Country: None (occurrence: None)
  Receive Date: 20080924
  Receipt Date: 20080923
  Transmission Date: 20090109
  Serious: Yes (Death)
  Sender: FDA-Public Use
  Company Number: US-BRISTOL-MYERS SQUIBB COMPANY-14344840

PATIENT
  Age: 77 Year
  Sex: Male

DRUGS (1)
  1. SINEMET [Suspect]

REACTIONS (1)
  - DEATH [None]
